FAERS Safety Report 6426722-9 (Version None)
Quarter: 2009Q4

REPORT INFORMATION
  Report Type: 
  Country: None (occurrence: None)
  Receive Date: 20091104
  Receipt Date: 20091023
  Transmission Date: 20100525
  Serious: Yes (Other)
  Sender: FDA-Public Use
  Company Number: BR-ELI_LILLY_AND_COMPANY-BR200910006178

PATIENT
  Sex: Male
  Weight: 58 kg

DRUGS (1)
  1. CIALIS [Suspect]
     Dosage: 20 MG, MONTHLY (1/M)
     Route: 048

REACTIONS (3)
  - ABDOMINAL PAIN [None]
  - ANAL HAEMORRHAGE [None]
  - DIARRHOEA [None]
